FAERS Safety Report 23515307 (Version 4)
Quarter: 2025Q2

REPORT INFORMATION
  Report Type: Spontaneous
  Country: CO (occurrence: CO)
  Receive Date: 20240213
  Receipt Date: 20250626
  Transmission Date: 20250717
  Serious: Yes (Life-Threatening, Hospitalization, Other)
  Sender: SANDOZ
  Company Number: CO-002147023-PHHY2019CO083718

PATIENT
  Age: 74 Year
  Sex: Female
  Weight: 71 kg

DRUGS (24)
  1. RUXOLITINIB [Suspect]
     Active Substance: RUXOLITINIB
     Dosage: 10 MG, QD
     Route: 048
  2. RUXOLITINIB [Suspect]
     Active Substance: RUXOLITINIB
     Dosage: 10 MG, QD, (1 OF 10 MG)
     Route: 065
     Dates: start: 202504, end: 202505
  3. RUXOLITINIB [Suspect]
     Active Substance: RUXOLITINIB
     Dosage: 10 MG, Q12H
     Route: 048
     Dates: start: 201909
  4. RUXOLITINIB [Suspect]
     Active Substance: RUXOLITINIB
     Dosage: 10 MG, Q12H (EVERY 12 HOURS)
     Route: 048
     Dates: start: 20190118
  5. RUXOLITINIB [Suspect]
     Active Substance: RUXOLITINIB
     Dosage: 10 MG, Q12H (EVERY 12 HOURS)
     Route: 048
  6. RUXOLITINIB [Suspect]
     Active Substance: RUXOLITINIB
     Dosage: 10 MG, QD, (1 OF 10 MG)
     Route: 048
     Dates: start: 202504, end: 202505
  7. RUXOLITINIB [Suspect]
     Active Substance: RUXOLITINIB
     Dosage: 10 MG, BID (ONE IN THE MORNING AND ONE IN THE AFTERNOON OF 10MG)
     Route: 065
  8. RUXOLITINIB [Suspect]
     Active Substance: RUXOLITINIB
     Route: 048
  9. RUXOLITINIB [Suspect]
     Active Substance: RUXOLITINIB
     Route: 048
  10. RUXOLITINIB [Suspect]
     Active Substance: RUXOLITINIB
     Dosage: 20 MG, QD
     Route: 048
  11. RUXOLITINIB [Suspect]
     Active Substance: RUXOLITINIB
     Dosage: 20 MG, QD
     Route: 048
  12. RUXOLITINIB [Suspect]
     Active Substance: RUXOLITINIB
     Dosage: 20 MG, QD (ONCE DAILY)
     Route: 048
     Dates: start: 20190118
  13. RUXOLITINIB [Suspect]
     Active Substance: RUXOLITINIB
     Indication: Myelofibrosis
     Dosage: 20 MG, Q12H
     Route: 048
     Dates: start: 201806, end: 201909
  14. RUXOLITINIB [Suspect]
     Active Substance: RUXOLITINIB
     Dosage: 20 MG, Q12H (10 MG AT 8 IN THE MORNING AND 10 MG AT 8 IN THE NIGHT)
     Route: 065
  15. RUXOLITINIB [Suspect]
     Active Substance: RUXOLITINIB
     Dosage: 30 MG, QD (3 OF 10 MG)
     Route: 048
  16. RUXOLITINIB [Suspect]
     Active Substance: RUXOLITINIB
     Route: 048
  17. RUXOLITINIB [Suspect]
     Active Substance: RUXOLITINIB
     Dosage: 2 OF 10 MG, QD
     Route: 048
  18. RUXOLITINIB [Suspect]
     Active Substance: RUXOLITINIB
     Dosage: UNK, Q12H
     Route: 048
  19. RUXOLITINIB [Suspect]
     Active Substance: RUXOLITINIB
     Route: 048
  20. RUXOLITINIB [Suspect]
     Active Substance: RUXOLITINIB
     Route: 048
  21. LOSARTAN [Suspect]
     Active Substance: LOSARTAN
     Indication: Hypertension
     Dosage: 50 MG, Q12H
     Route: 048
  22. METFORMIN [Suspect]
     Active Substance: METFORMIN HYDROCHLORIDE
     Indication: Type 1 diabetes mellitus
     Dosage: 850 MG, QD
     Route: 048
  23. ASPIRIN [Concomitant]
     Active Substance: ASPIRIN
     Indication: Product used for unknown indication
     Dosage: 100 MG, QD
     Route: 048
  24. ERYTHROPOIETIN [Concomitant]
     Active Substance: ERYTHROPOIETIN
     Indication: Myelofibrosis
     Dosage: 30000 IU, QW
     Route: 058

REACTIONS (25)
  - Platelet count increased [Unknown]
  - Asthenia [Unknown]
  - Platelet count decreased [Unknown]
  - Pain [Unknown]
  - Headache [Recovered/Resolved]
  - Blood pressure increased [Recovered/Resolved]
  - Diabetes mellitus [Unknown]
  - General physical health deterioration [Unknown]
  - Memory impairment [Unknown]
  - Hypertension [Unknown]
  - Chest pain [Unknown]
  - Illness [Unknown]
  - Dysstasia [Unknown]
  - Weight decreased [Unknown]
  - Head injury [Unknown]
  - Neck pain [Unknown]
  - Haemoglobin increased [Unknown]
  - Weight increased [Unknown]
  - Fatigue [Unknown]
  - Myalgia [Unknown]
  - Haemoglobin decreased [Unknown]
  - Inappropriate schedule of product administration [Unknown]
  - Wrong technique in product usage process [Unknown]
  - Product supply issue [Unknown]
  - Product dose omission issue [Unknown]

NARRATIVE: CASE EVENT DATE: 20190404
